FAERS Safety Report 17826272 (Version 2)
Quarter: 2020Q4

REPORT INFORMATION
  Report Type: Report from Study
  Country: US (occurrence: US)
  Receive Date: 20200526
  Receipt Date: 20201118
  Transmission Date: 20210113
  Serious: Yes (Death, Life-Threatening, Hospitalization, Other)
  Sender: FDA-Public Use
  Company Number: US-SA-2020SA092788

PATIENT

DRUGS (44)
  1. METHYLPREDNISOLONE. [Concomitant]
     Active Substance: METHYLPREDNISOLONE
     Dosage: 40 MG, BID
     Route: 042
     Dates: start: 20200413, end: 20200414
  2. POLYETHYLENE GLYCOL [Concomitant]
     Active Substance: POLYETHYLENE GLYCOLS
     Indication: GASTROINTESTINAL MOTILITY DISORDER
     Dosage: 17 G, QD
     Route: 048
     Dates: start: 20200404, end: 20200414
  3. SARILUMAB [Suspect]
     Active Substance: SARILUMAB
     Indication: COVID-19
     Dosage: 400 MG, 1X
     Route: 042
     Dates: start: 20200402, end: 20200402
  4. HYDROXYCHLOROQUINE [Concomitant]
     Active Substance: HYDROXYCHLOROQUINE
     Indication: COVID-19
     Dosage: 200 MG, BID
     Route: 048
     Dates: start: 20200331, end: 20200403
  5. ACETAMINOPHEN. [Concomitant]
     Active Substance: ACETAMINOPHEN
     Dosage: 650 MG, PRN (AS NECESSARY)
     Route: 048
     Dates: start: 20200329, end: 20200403
  6. LOSARTAN. [Concomitant]
     Active Substance: LOSARTAN
     Indication: HYPERTENSION
     Dosage: 100 MG, QD END DATE: 03-APR-2020 00:00
     Route: 048
  7. FAMOTIDINE. [Concomitant]
     Active Substance: FAMOTIDINE
     Indication: PROPHYLAXIS
  8. ANAKINRA [Concomitant]
     Active Substance: ANAKINRA
     Dosage: 100 MG, QID
     Route: 058
     Dates: start: 20200403, end: 20200406
  9. SENNA [SENNA ALEXANDRINA] [Concomitant]
     Active Substance: SENNA LEAF
     Indication: GASTROINTESTINAL MOTILITY DISORDER
     Dosage: 10 ML, QD
     Route: 048
     Dates: start: 20200404, end: 20200414
  10. CEFEPIME [Concomitant]
     Active Substance: CEFEPIME HYDROCHLORIDE
     Indication: PNEUMONIA
     Dosage: 2000 MG, SINGLE
     Route: 042
     Dates: start: 20200413, end: 20200413
  11. ALBUTEROL [SALBUTAMOL] [Concomitant]
     Active Substance: ALBUTEROL
     Indication: DYSPNOEA
     Dosage: 90 UG, Q6H
     Route: 055
     Dates: start: 20200401, end: 20200404
  12. ANAKINRA [Concomitant]
     Active Substance: ANAKINRA
     Dosage: 100 MG, BID
     Route: 042
     Dates: start: 20200406, end: 20200408
  13. ASCORBIC ACID. [Concomitant]
     Active Substance: ASCORBIC ACID
     Indication: VITAMIN SUPPLEMENTATION
     Dosage: 500 MG, QD
     Route: 048
     Dates: start: 20200406, end: 20200414
  14. PANTOPRAZOLE [Concomitant]
     Active Substance: PANTOPRAZOLE
     Indication: GASTROOESOPHAGEAL REFLUX DISEASE
     Dosage: 40 MG, BID
     Route: 042
     Dates: start: 20200410, end: 20200413
  15. TOCILIZUMAB. [Concomitant]
     Active Substance: TOCILIZUMAB
     Indication: IMMUNOSUPPRESSION
     Dosage: 800 MG, SINGLE
     Route: 042
     Dates: start: 20200413, end: 20200413
  16. ACETAMINOPHEN. [Concomitant]
     Active Substance: ACETAMINOPHEN
     Indication: PYREXIA
     Dosage: 650 MG, PRN
     Route: 048
     Dates: start: 20200406, end: 20200414
  17. ENOXAPARIN [Concomitant]
     Active Substance: ENOXAPARIN
     Dosage: 90 MG, BID
     Route: 058
     Dates: start: 20200408, end: 20200413
  18. POLYETHYLENE GLYCOL [Concomitant]
     Active Substance: POLYETHYLENE GLYCOLS
     Indication: GASTROINTESTINAL MOTILITY DISORDER
  19. FENTANYL. [Concomitant]
     Active Substance: FENTANYL
     Dosage: 100 UG, 1X
     Route: 042
     Dates: start: 20200409, end: 20200409
  20. FENTANYL. [Concomitant]
     Active Substance: FENTANYL
     Dosage: 100 UG, CONT
     Route: 062
     Dates: start: 20200410, end: 20200413
  21. FENTANYL. [Concomitant]
     Active Substance: FENTANYL
     Dosage: 100 ?G, SINGLE
     Route: 042
     Dates: start: 20200413, end: 20200413
  22. ROCURONIUM [Concomitant]
     Active Substance: ROCURONIUM BROMIDE
     Dosage: 500 MG, CONITNUOUS INFUSION
     Route: 042
     Dates: start: 20200413, end: 20200414
  23. ENOXAPARIN [Concomitant]
     Active Substance: ENOXAPARIN
     Indication: THROMBOSIS PROPHYLAXIS
     Dosage: 130 MG, QD
     Route: 058
     Dates: start: 20200403, end: 20200404
  24. DEXTROMETHORPHAN HBR + GUAIFENESIN [Concomitant]
     Active Substance: DEXTROMETHORPHAN HYDROBROMIDE\GUAIFENESIN
     Indication: COVID-19
     Dosage: 10 ML, PRN
     Route: 048
     Dates: start: 20200329, end: 20200403
  25. FAMOTIDINE. [Concomitant]
     Active Substance: FAMOTIDINE
     Indication: PROPHYLAXIS
     Dosage: 20 MG, BID
     Route: 042
     Dates: start: 20200404, end: 20200414
  26. FENTANYL. [Concomitant]
     Active Substance: FENTANYL
     Indication: SEDATION
     Dosage: 5000 UG, CONT
     Route: 042
     Dates: start: 20200403, end: 20200414
  27. FENTANYL. [Concomitant]
     Active Substance: FENTANYL
     Dosage: 100 UG SINGLE
     Route: 042
     Dates: start: 20200407, end: 20200407
  28. METHYLPREDNISOLONE. [Concomitant]
     Active Substance: METHYLPREDNISOLONE
     Indication: PNEUMONIA
     Dosage: 50 MG, BID; 650 MG, AS NECESSARY
     Route: 042
     Dates: start: 20200401, end: 20200404
  29. ENOXAPARIN [Concomitant]
     Active Substance: ENOXAPARIN
     Indication: THROMBOSIS PROPHYLAXIS
     Dosage: 40 MG, QD
     Route: 058
     Dates: start: 20200330, end: 20200403
  30. ROCURONIUM [Concomitant]
     Active Substance: ROCURONIUM BROMIDE
     Indication: SEDATION
     Dosage: 25 MG, SINGLE
     Route: 042
     Dates: start: 20200413, end: 20200413
  31. ANAKINRA [Concomitant]
     Active Substance: ANAKINRA
     Indication: IMMUNOSUPPRESSION
     Dosage: 100 MG, QD
     Route: 058
     Dates: start: 20200409, end: 20200413
  32. ATORVASTATIN [Concomitant]
     Active Substance: ATORVASTATIN
     Indication: HYPERCHOLESTEROLAEMIA
     Dosage: 10 MG, QD
     Route: 048
     Dates: start: 20200403, end: 20200414
  33. INSULIN [Concomitant]
     Active Substance: INSULIN NOS
     Indication: DIABETES MELLITUS
     Dosage: SLIDING SCALE UNIT, QID
     Route: 058
     Dates: start: 20200407, end: 20200414
  34. ASCORBIC ACID. [Concomitant]
     Active Substance: ASCORBIC ACID
     Indication: VITAMIN SUPPLEMENTATION
  35. ACETAMINOPHEN. [Concomitant]
     Active Substance: ACETAMINOPHEN
     Dosage: 1000 MG, SINGLE
     Route: 042
     Dates: start: 20200406, end: 20200406
  36. ACETAMINOPHEN. [Concomitant]
     Active Substance: ACETAMINOPHEN
     Dosage: 1000 MG, SINGLE
     Route: 042
     Dates: start: 20200409, end: 20200409
  37. ASPIRIN [ACETYLSALICYLIC ACID] [Concomitant]
     Active Substance: ASPIRIN
     Indication: CORONARY ARTERY DISEASE
     Dosage: 81 MG, QD END DATE: 14-APR-2020
     Route: 048
  38. ZINC SULFATE. [Concomitant]
     Active Substance: ZINC SULFATE
     Indication: COVID-19
     Dosage: 220 MG, QD
     Route: 048
     Dates: start: 20200329, end: 20200403
  39. BENZONATATE. [Concomitant]
     Active Substance: BENZONATATE
     Indication: COUGH
     Dosage: 100 MG, TID
     Route: 048
     Dates: start: 20200329, end: 20200403
  40. ATORVASTATIN [Concomitant]
     Active Substance: ATORVASTATIN
     Indication: HYPERCHOLESTEROLAEMIA
     Dosage: 10 MG, QD
     Route: 048
     Dates: start: 20200329, end: 20200403
  41. VANCOMYCIN [Concomitant]
     Active Substance: VANCOMYCIN
     Indication: ANTIBIOTIC THERAPY
     Dosage: 1000 MG, 1X
     Route: 042
     Dates: start: 20200413, end: 20200413
  42. DEXMEDETOMIDINE. [Concomitant]
     Active Substance: DEXMEDETOMIDINE
     Indication: SEDATION
     Dosage: 200 UG, CONT
     Route: 042
     Dates: start: 20200409, end: 20200414
  43. KETAMINE [Concomitant]
     Active Substance: KETAMINE
     Indication: SEDATION
     Dosage: 1000 MG, CONTINUOUS INFUSION
     Route: 042
     Dates: start: 20200412, end: 20200414
  44. NPH [ISOPHANE INSULIN] [Concomitant]
     Active Substance: INSULIN NOS
     Indication: DIABETES MELLITUS
     Dosage: 31 IU, QID
     Route: 058
     Dates: start: 20200408, end: 20200414

REACTIONS (7)
  - Cardio-respiratory arrest [Fatal]
  - Blood potassium increased [Not Recovered/Not Resolved]
  - Alanine aminotransferase increased [Not Recovered/Not Resolved]
  - Cardiogenic shock [Not Recovered/Not Resolved]
  - Hypoxia [Not Recovered/Not Resolved]
  - Aspartate aminotransferase increased [Not Recovered/Not Resolved]
  - Diabetic ketoacidosis [Recovered/Resolved]

NARRATIVE: CASE EVENT DATE: 20200403
